FAERS Safety Report 5802791-1 (Version None)
Quarter: 2008Q2

REPORT INFORMATION
  Report Type: 
  Country: None (occurrence: None)
  Receive Date: 20080627
  Receipt Date: 20080227
  Transmission Date: 20081010
  Serious: Yes (Hospitalization)
  Sender: FDA-Public Use
  Company Number: PHEH2008US02330

PATIENT
  Age: 54 Year
  Sex: Female
  Weight: 78.5 kg

DRUGS (1)
  1. RECLAST [Suspect]
     Indication: OSTEOPOROSIS
     Dosage: 5 MG, ONCE/SINGLE, INFUSION
     Dates: start: 20080221

REACTIONS (2)
  - BONE PAIN [None]
  - INFLUENZA LIKE ILLNESS [None]
